FAERS Safety Report 22973240 (Version 3)
Quarter: 2024Q2

REPORT INFORMATION
  Report Type: Report from Study
  Country: US (occurrence: US)
  Receive Date: 20230922
  Receipt Date: 20240429
  Transmission Date: 20240715
  Serious: Yes (Hospitalization, Other)
  Sender: FDA-Public Use
  Company Number: US-ABBVIE-5413803

PATIENT
  Sex: Female

DRUGS (1)
  1. HUMIRA [Suspect]
     Active Substance: ADALIMUMAB
     Indication: Crohn^s disease
     Dosage: LAST ADMIN DATE: 2023?CITRATE FREE
     Route: 058
     Dates: start: 20230130

REACTIONS (9)
  - Gastric cancer [Unknown]
  - Lung neoplasm malignant [Unknown]
  - Tuberculosis [Recovering/Resolving]
  - Malaise [Unknown]
  - Breast cancer female [Unknown]
  - Localised oedema [Unknown]
  - Pulmonary oedema [Unknown]
  - Decreased appetite [Unknown]
  - Asthenia [Unknown]

NARRATIVE: CASE EVENT DATE: 20230101
